FAERS Safety Report 19194454 (Version 1)
Quarter: 2021Q2

REPORT INFORMATION
  Report Type: Spontaneous
  Country: CN (occurrence: CN)
  Receive Date: 20210429
  Receipt Date: 20210429
  Transmission Date: 20210717
  Serious: Yes (Other)
  Sender: FDA-Public Use
  Company Number: CN-PFIZER INC-2021426350

PATIENT
  Age: 33 Year
  Sex: Female
  Weight: 88 kg

DRUGS (3)
  1. OXYTOCIN. [Concomitant]
     Active Substance: OXYTOCIN
     Indication: THERAPEUTIC PROCEDURE
     Dosage: 10.000 DF, 1X/DAY
     Route: 041
     Dates: start: 20210413, end: 20210415
  2. CARBETOCIN [Concomitant]
     Active Substance: CARBETOCIN
     Indication: PROPHYLAXIS
     Dosage: 100.000 UG, 1X/DAY
     Route: 042
     Dates: start: 20210413, end: 20210413
  3. HEMABATE [Suspect]
     Active Substance: CARBOPROST TROMETHAMINE
     Indication: UTERINE HYPOTONUS
     Dosage: 250 UG, 1X/DAY
     Route: 019
     Dates: start: 20210413, end: 20210413

REACTIONS (7)
  - Headache [Recovering/Resolving]
  - Vision blurred [Recovering/Resolving]
  - Product use issue [Recovered/Resolved]
  - Blood pressure increased [Recovering/Resolving]
  - Chest discomfort [Unknown]
  - Off label use [Recovered/Resolved]
  - Tachypnoea [Unknown]

NARRATIVE: CASE EVENT DATE: 20210413
